FAERS Safety Report 15388698 (Version 1)
Quarter: 2018Q3

REPORT INFORMATION
  Report Type: Spontaneous
  Country: US (occurrence: US)
  Receive Date: 20180907
  Receipt Date: 20180907
  Transmission Date: 20181010
  Serious: Yes (Hospitalization)
  Sender: FDA-Public Use
  Company Number: None

PATIENT
  Age: 74 Year
  Sex: Male
  Weight: 59.4 kg

DRUGS (10)
  1. OXYCODONE [Concomitant]
     Active Substance: OXYCODONE
  2. LOSARTAN. [Concomitant]
     Active Substance: LOSARTAN
  3. COLACE [Concomitant]
     Active Substance: DOCUSATE SODIUM
  4. OPDIVO [Concomitant]
     Active Substance: NIVOLUMAB
     Dates: end: 20180306
  5. TYLENOL [Concomitant]
     Active Substance: ACETAMINOPHEN
  6. CARVEDILOL. [Concomitant]
     Active Substance: CARVEDILOL
  7. DILANTIN [Concomitant]
     Active Substance: PHENYTOIN
  8. INCRUSE ELLIPTA [Concomitant]
     Active Substance: UMECLIDINIUM BROMIDE
  9. KEYTRUDA [Suspect]
     Active Substance: PEMBROLIZUMAB
     Indication: LUNG NEOPLASM MALIGNANT
     Dosage: ?          OTHER FREQUENCY:Q 3 WEEKS;?
     Route: 042
     Dates: start: 20180302, end: 20180907
  10. DULERA [Concomitant]
     Active Substance: FORMOTEROL FUMARATE DIHYDRATE\MOMETASONE FUROATE

REACTIONS (1)
  - Pelvic fracture [None]

NARRATIVE: CASE EVENT DATE: 20180907
